FAERS Safety Report 13765400 (Version 1)
Quarter: 2017Q3

REPORT INFORMATION
  Report Type: Report from Study
  Country: IT (occurrence: IT)
  Receive Date: 20170718
  Receipt Date: 20170718
  Transmission Date: 20171127
  Serious: Yes (Other)
  Sender: FDA-Public Use
  Company Number: IT-TEVA-786742ACC

PATIENT
  Age: 75 Year
  Sex: Female

DRUGS (10)
  1. AFLIBERCEPT [Suspect]
     Active Substance: AFLIBERCEPT
     Indication: COLON CANCER METASTATIC
     Dosage: 160 MG CYCLICAL
     Route: 042
     Dates: start: 20150722
  2. FLUOROURACIL. [Suspect]
     Active Substance: FLUOROURACIL
     Indication: COLON CANCER METASTATIC
     Dosage: 2170 MG CYCLICAL
     Route: 042
     Dates: start: 20150722
  3. FOLINIC ACID [Suspect]
     Active Substance: LEUCOVORIN
     Dates: start: 20150826, end: 20150826
  4. VITAMIN D [Concomitant]
     Active Substance: CHOLECALCIFEROL
     Indication: PRODUCT USED FOR UNKNOWN INDICATION
  5. FOLINIC ACID [Suspect]
     Active Substance: LEUCOVORIN
     Indication: COLON CANCER METASTATIC
     Dosage: 250 MG CYCLICAL
     Route: 042
     Dates: start: 20150722
  6. IRINOTECAN [Suspect]
     Active Substance: IRINOTECAN
     Indication: COLON CANCER METASTATIC
     Dosage: 170 MG CYCLICAL
     Route: 042
     Dates: start: 20150722
  7. ESOMEPRAZOLE MAGNESIUM TRIHYDRATE [Concomitant]
     Active Substance: ESOMEPRAZOLE MAGNESIUM
     Indication: PRODUCT USED FOR UNKNOWN INDICATION
  8. AFLIBERCEPT [Suspect]
     Active Substance: AFLIBERCEPT
     Dosage: 160 MG CYCLICAL
     Route: 042
     Dates: start: 20150826, end: 20150826
  9. FLUOROURACIL. [Suspect]
     Active Substance: FLUOROURACIL
     Dates: start: 20150826
  10. IRINOTECAN [Suspect]
     Active Substance: IRINOTECAN
     Dates: start: 20150826, end: 20150826

REACTIONS (7)
  - Decreased appetite [Unknown]
  - Constipation [Recovered/Resolved]
  - Diarrhoea [Recovered/Resolved]
  - Back pain [Unknown]
  - Proteinuria [Unknown]
  - Asthenia [Unknown]
  - Stomatitis [Recovered/Resolved]

NARRATIVE: CASE EVENT DATE: 20150826
